FAERS Safety Report 7491918-4 (Version None)
Quarter: 2011Q1

REPORT INFORMATION
  Report Type: 
  Country: None (occurrence: None)
  Receive Date: 20110318
  Receipt Date: 20100803
  Transmission Date: 20110831
  Serious: Yes (Other)
  Sender: FDA-Public Use
  Company Number: 2-0810-55

PATIENT
  Sex: Female

DRUGS (7)
  1. ARICEPT [Concomitant]
  2. VIT D3 [Concomitant]
  3. APO-AMLODIPINE [Concomitant]
  4. DERMA-SMOOTHE/FS [Suspect]
     Indication: PSORIASIS
     Dosage: TOPICAL
     Route: 061
  5. ATACAND + APO-ATENOL [Concomitant]
  6. NEILMED [Concomitant]
  7. APO-SERTRALINE [Concomitant]

REACTIONS (1)
  - DRUG INEFFECTIVE [None]
